FAERS Safety Report 12699186 (Version 1)
Quarter: 2016Q3

REPORT INFORMATION
  Report Type: Spontaneous
  Country: US (occurrence: US)
  Receive Date: 20160830
  Receipt Date: 20160830
  Transmission Date: 20161109
  Serious: No
  Sender: FDA-Public Use
  Company Number: GXBR2016US002411

PATIENT
  Sex: Male

DRUGS (1)
  1. CILOSTAZOL TABLETS [Suspect]
     Active Substance: CILOSTAZOL
     Indication: CARDIOVASCULAR DISORDER
     Dosage: 100 MG, BID
     Route: 048

REACTIONS (2)
  - Diarrhoea [Unknown]
  - Faeces discoloured [Unknown]
